FAERS Safety Report 10636002 (Version 1)
Quarter: 2014Q4

REPORT INFORMATION
  Report Type: Spontaneous
  Country: GB (occurrence: GB)
  Receive Date: 20141205
  Receipt Date: 20141205
  Transmission Date: 20150529
  Serious: Yes (Other)
  Sender: FDA-Public Use
  Company Number: GB-WATSON-2014-26099

PATIENT
  Age: 38 Year
  Sex: Male

DRUGS (5)
  1. MIRTAZAPINE (UNKNOWN) [Suspect]
     Active Substance: MIRTAZAPINE
     Dosage: 30 MG, UNKNOWN
     Route: 065
  2. MIRTAZAPINE (UNKNOWN) [Suspect]
     Active Substance: MIRTAZAPINE
     Dosage: 15 MG, UNKNOWN
     Route: 065
     Dates: start: 201306
  3. MIRTAZAPINE (UNKNOWN) [Suspect]
     Active Substance: MIRTAZAPINE
     Indication: PRODUCT USED FOR UNKNOWN INDICATION
     Dosage: 45 MG, UNKNOWN
     Route: 065
     Dates: end: 201403
  4. CITALOPRAM [Concomitant]
     Active Substance: CITALOPRAM HYDROBROMIDE
     Indication: PRODUCT USED FOR UNKNOWN INDICATION
     Dosage: UNK
     Route: 065
  5. LORAZEPAM. [Concomitant]
     Active Substance: LORAZEPAM
     Indication: PRODUCT USED FOR UNKNOWN INDICATION
     Dosage: UNK
     Route: 065
     Dates: start: 201401

REACTIONS (14)
  - Agitation [Unknown]
  - Anxiety [Unknown]
  - Restlessness [Unknown]
  - Malaise [Unknown]
  - Stress [Unknown]
  - Cognitive disorder [Unknown]
  - Psychomotor hyperactivity [Unknown]
  - Panic disorder [Unknown]
  - Lethargy [Unknown]
  - Anger [Unknown]
  - Neck pain [Unknown]
  - Pain in extremity [Unknown]
  - Suicidal ideation [Unknown]
  - Drug interaction [Unknown]
